FAERS Safety Report 4615169-3 (Version None)
Quarter: 2005Q1

REPORT INFORMATION
  Report Type: 
  Country: None (occurrence: None)
  Receive Date: 20050322
  Receipt Date: 20050309
  Transmission Date: 20050727
  Serious: Yes (Other)
  Sender: FDA-Public Use
  Company Number: AU-GLAXOSMITHKLINE-B0374827A

PATIENT
  Age: 56 Year
  Sex: Female

DRUGS (7)
  1. BECONASE [Suspect]
     Indication: SEASONAL ALLERGY
     Route: 045
     Dates: start: 19800101, end: 20050101
  2. VOLTAREN [Concomitant]
     Indication: ARTHRITIS
  3. AURORIX [Concomitant]
     Indication: DEPRESSION
  4. RIVOTRIL [Concomitant]
     Indication: ANXIETY
  5. VENTOLIN HFA [Concomitant]
     Indication: ASTHMA
  6. PULMICORT [Concomitant]
     Indication: ASTHMA
  7. ZANIDIP [Concomitant]
     Indication: HYPERTENSION

REACTIONS (3)
  - FOOT FRACTURE [None]
  - MEDICATION ERROR [None]
  - WEIGHT INCREASED [None]
